FAERS Safety Report 9452438 (Version 1)
Quarter: 2013Q3

REPORT INFORMATION
  Report Type: Spontaneous
  Country: GB (occurrence: GB)
  Receive Date: 20130812
  Receipt Date: 20130812
  Transmission Date: 20140515
  Serious: Yes (Hospitalization)
  Sender: FDA-Public Use
  Company Number: GB-JNJFOC-20130802698

PATIENT
  Age: 84 Year
  Sex: Female
  Weight: 64 kg

DRUGS (7)
  1. XARELTO [Suspect]
     Indication: THROMBOSIS PROPHYLAXIS
     Route: 048
     Dates: start: 20130706, end: 20130711
  2. XARELTO [Suspect]
     Indication: PULMONARY EMBOLISM
     Route: 048
     Dates: start: 20130706, end: 20130711
  3. DOXAZOSIN [Concomitant]
     Route: 065
  4. LANSOPRAZOLE [Concomitant]
     Route: 065
  5. INSULIN ASPART [Concomitant]
     Route: 065
  6. INSULIN GLARGINE [Concomitant]
     Route: 065
  7. AMLODIPINE [Concomitant]
     Route: 065

REACTIONS (2)
  - Gastrointestinal haemorrhage [Not Recovered/Not Resolved]
  - Duodenal ulcer [Unknown]
